FAERS Safety Report 4659073-3 (Version None)
Quarter: 2005Q2

REPORT INFORMATION
  Report Type: 
  Country: None (occurrence: None)
  Receive Date: 20050502
  Receipt Date: 20050112
  Transmission Date: 20051028
  Serious: No
  Sender: FDA-Public Use
  Company Number: 200418247US

PATIENT
  Age: 64 Year
  Sex: Female
  Weight: 86.3 kg

DRUGS (11)
  1. KETEK [Suspect]
     Indication: INFECTION
     Dosage: 400 MG QD PO
     Route: 048
     Dates: start: 20041021, end: 20041027
  2. FLUTICASONE PROPIONATE, SALMETEROL XINAFOATE (ADVAIR) [Concomitant]
  3. ATENOLOL [Concomitant]
  4. BUPROPION HYDROCHLORIDE (WELLBUTRIN) [Concomitant]
  5. NEXIUM [Concomitant]
  6. HYDROCHLOROTHIAZIDE [Concomitant]
  7. LIPITOR [Concomitant]
  8. LORAZEPAM [Concomitant]
  9. TRAZODONE [Concomitant]
  10. RALOXIFENE HYDROCHLORIDE (EVISTA) [Concomitant]
  11. ASPIRIN [Concomitant]

REACTIONS (2)
  - DIPLOPIA [None]
  - VISION BLURRED [None]
